FAERS Safety Report 4910697-5 (Version None)
Quarter: 2006Q1

REPORT INFORMATION
  Report Type: 
  Country: None (occurrence: None)
  Receive Date: 20060208
  Receipt Date: 20060208
  Transmission Date: 20060701
  Serious: Yes (Other)
  Sender: FDA-Public Use
  Company Number: None

PATIENT
  Sex: Female
  Weight: 78.4723 kg

DRUGS (4)
  1. KETEK [Suspect]
     Indication: LYME DISEASE
     Dosage: PO
     Route: 048
     Dates: start: 20050214
  2. KETEK [Suspect]
     Indication: LYME DISEASE
     Dosage: PO
     Route: 048
     Dates: start: 20050404
  3. SYNTHROID [Concomitant]
  4. HERBAL ^MOLD^ [Concomitant]

REACTIONS (2)
  - HEPATIC NECROSIS [None]
  - HEPATITIS [None]
